FAERS Safety Report 4960904-8 (Version None)
Quarter: 2006Q2

REPORT INFORMATION
  Report Type: 
  Country: None (occurrence: None)
  Receive Date: 20060403
  Receipt Date: 20060317
  Transmission Date: 20061013
  Serious: Yes (Other)
  Sender: FDA-Public Use
  Company Number: GBWYE480417MAR06

PATIENT
  Sex: Female

DRUGS (9)
  1. ENBREL [Suspect]
     Indication: DRUG USE FOR UNKNOWN INDICATION
     Dosage: UNKNOWN
     Dates: start: 20020101
  2. LANSOPRAZOLE [Concomitant]
  3. DIHYDROCODEINE [Concomitant]
  4. ACETAMINOPHEN [Concomitant]
  5. NAPROXEN [Concomitant]
  6. CITALOPRAM [Concomitant]
  7. CALCIUM CARBONATE [Concomitant]
  8. GABAPENTIN [Concomitant]
  9. RISEDRONATE [Concomitant]

REACTIONS (1)
  - MACULOPATHY [None]
